FAERS Safety Report 5039271-X (Version None)
Quarter: 2006Q2

REPORT INFORMATION
  Report Type: 
  Country: None (occurrence: None)
  Receive Date: 20060623
  Receipt Date: 20060614
  Transmission Date: 20061013
  Serious: Yes (Hospitalization, Other)
  Sender: FDA-Public Use
  Company Number: 2006075930

PATIENT
  Age: 52 Year
  Sex: Male
  Weight: 122.4712 kg

DRUGS (1)
  1. LYRICA [Suspect]
     Dates: start: 20060101, end: 20060601

REACTIONS (3)
  - BLOOD GLUCOSE INCREASED [None]
  - MALAISE [None]
  - VISION BLURRED [None]
